FAERS Safety Report 25236719 (Version 3)
Quarter: 2025Q2

REPORT INFORMATION
  Report Type: Spontaneous
  Country: PL (occurrence: PL)
  Receive Date: 20250424
  Receipt Date: 20250430
  Transmission Date: 20250716
  Serious: Yes (Other)
  Sender: GILEAD
  Company Number: PL-GILEAD-2025-0710682

PATIENT
  Age: 42 Year
  Sex: Female

DRUGS (1)
  1. TRODELVY [Suspect]
     Active Substance: SACITUZUMAB GOVITECAN-HZIY
     Indication: Product used for unknown indication
     Route: 065

REACTIONS (2)
  - Papilloedema [Unknown]
  - Ocular toxicity [Unknown]
